FAERS Safety Report 20811671 (Version 8)
Quarter: 2022Q4

REPORT INFORMATION
  Report Type: Report from Study
  Country: US (occurrence: US)
  Receive Date: 20220510
  Receipt Date: 20221022
  Transmission Date: 20230113
  Serious: Yes (Hospitalization, Other)
  Sender: FDA-Public Use
  Company Number: US-ABBVIE-22K-163-4388251-00

PATIENT
  Sex: Female

DRUGS (4)
  1. IMBRUVICA [Suspect]
     Active Substance: IBRUTINIB
     Indication: Chronic lymphocytic leukaemia (in remission)
     Route: 048
     Dates: start: 202201, end: 202201
  2. IMBRUVICA [Suspect]
     Active Substance: IBRUTINIB
     Indication: Chronic lymphocytic leukaemia (in remission)
     Dosage: DRUG END DATE 2022
     Route: 048
     Dates: start: 202201
  3. IMBRUVICA [Suspect]
     Active Substance: IBRUTINIB
     Indication: Chronic lymphocytic leukaemia (in remission)
     Route: 048
     Dates: start: 20220516
  4. ETHACRYNIC ACID [Concomitant]
     Active Substance: ETHACRYNIC ACID
     Indication: Product used for unknown indication
     Dosage: 25 MG
     Route: 065

REACTIONS (31)
  - Gallbladder abscess [Recovering/Resolving]
  - Blood sodium decreased [Unknown]
  - Rash [Unknown]
  - Skin laceration [Unknown]
  - Sepsis [Recovering/Resolving]
  - Blood pressure increased [Recovering/Resolving]
  - Haemoglobin decreased [Unknown]
  - Blister [Unknown]
  - Skin cancer [Unknown]
  - Dry skin [Unknown]
  - Anaemia [Unknown]
  - Erythema [Unknown]
  - Infection susceptibility increased [Unknown]
  - Pneumonia [Unknown]
  - Eczema [Unknown]
  - Weight decreased [Unknown]
  - Renal cyst [Unknown]
  - Wound complication [Unknown]
  - Wound haemorrhage [Unknown]
  - Inflammation of wound [Unknown]
  - Headache [Unknown]
  - Peripheral swelling [Unknown]
  - Wound abscess [Unknown]
  - Pain of skin [Unknown]
  - Pain [Unknown]
  - Feeling cold [Unknown]
  - Cholelithiasis [Unknown]
  - Anxiety [Unknown]
  - Blood magnesium decreased [Unknown]
  - Blood iron decreased [Unknown]
  - Pain of skin [Unknown]

NARRATIVE: CASE EVENT DATE: 20220101
